FAERS Safety Report 10642846 (Version 1)
Quarter: 2014Q4

REPORT INFORMATION
  Report Type: Spontaneous
  Country: US (occurrence: None)
  Receive Date: 20141121
  Receipt Date: 20141121
  Transmission Date: 20150529
  Serious: No
  Sender: FDA-Public Use
  Company Number: 163-10004-14074329

PATIENT
  Age: 69 Year
  Sex: Female

DRUGS (4)
  1. PAROXETINE [Concomitant]
     Active Substance: PAROXETINE\PAROXETINE HYDROCHLORIDE
  2. KCL (POTASSIUM CHLORIDE) [Concomitant]
  3. AYGESTINE (NORETHISTERONE ACETATE) [Concomitant]
  4. OTEZLA [Suspect]
     Active Substance: APREMILAST
     Indication: PSORIATIC ARTHROPATHY
     Dosage: TEMPORARILY INTERRUPTED
     Route: 048
     Dates: start: 20140522

REACTIONS (1)
  - Nausea [None]

NARRATIVE: CASE EVENT DATE: 2014
